FAERS Safety Report 8925367 (Version 1)
Quarter: 2012Q4

REPORT INFORMATION
  Report Type: 
  Country: JP (occurrence: JP)
  Receive Date: 20121126
  Receipt Date: 20121126
  Transmission Date: 20130627
  Serious: Yes (Hospitalization, Other)
  Sender: FDA-Public Use
  Company Number: JP-CELGENEUS-087-21880-12090582

PATIENT
  Age: 68 Year
  Sex: Female
  Weight: 48.9 kg

DRUGS (18)
  1. REVLIMID [Suspect]
     Indication: MULTIPLE MYELOMA
     Dosage: 25 Milligram
     Route: 048
     Dates: start: 20120629, end: 20120816
  2. REVLIMID [Suspect]
     Dosage: 5 Milligram
     Route: 048
     Dates: start: 20121013
  3. LENADEX [Suspect]
     Indication: MULTIPLE MYELOMA
     Route: 048
     Dates: start: 20120629
  4. LENADEX [Suspect]
     Dosage: 20 Milligram
     Route: 048
     Dates: start: 20120727, end: 20120730
  5. LENADEX [Suspect]
     Dosage: 20 Milligram
     Route: 048
     Dates: start: 20120803, end: 20120806
  6. LENADEX [Suspect]
     Dosage: 20 Milligram
     Route: 048
     Dates: start: 20120810, end: 20120813
  7. LENADEX [Suspect]
     Dosage: 12 Milligram
     Route: 048
     Dates: start: 20121013
  8. BONALON [Concomitant]
     Indication: ILL-DEFINED DISORDER
     Dosage: 35 Milligram
     Route: 048
     Dates: start: 20120727, end: 20120730
  9. GASTER [Concomitant]
     Indication: PROPHYLAXIS
     Dosage: 40 Milligram
     Route: 048
     Dates: start: 20120727, end: 20120823
  10. METHYCOBAL [Concomitant]
     Indication: ILL-DEFINED DISORDER
     Dosage: 1000 Microgram
     Route: 048
     Dates: start: 20120727, end: 20120823
  11. JUVELA [Concomitant]
     Indication: ILL-DEFINED DISORDER
     Dosage: 100 Milligram
     Route: 048
     Dates: start: 20120727, end: 20120823
  12. RIVOTRIL [Concomitant]
     Indication: PROPHYLAXIS
     Dosage: 2 Milligram
     Route: 048
     Dates: start: 20120727, end: 20120823
  13. RINLAXER [Concomitant]
     Indication: PROPHYLAXIS
     Dosage: 250 Milligram
     Route: 048
     Dates: start: 20120727, end: 20120823
  14. CELECOX [Concomitant]
     Indication: PROPHYLAXIS
     Dosage: 200 Milligram
     Route: 048
     Dates: start: 20120727, end: 20120823
  15. HEAVY MAGNESIUM OXIDE [Concomitant]
     Indication: PROPHYLAXIS
     Dosage: 1.5 Gram
     Route: 048
     Dates: start: 20120727, end: 20120823
  16. PURSENNID [Concomitant]
     Indication: PROPHYLAXIS
     Dosage: 12 Milligram
     Route: 048
     Dates: start: 20120727, end: 20120823
  17. FUNGIZONE [Concomitant]
     Indication: PROPHYLAXIS
     Dosage: 6 milliliter
     Route: 048
     Dates: start: 20120727, end: 20120823
  18. BAYASPIRIN [Concomitant]
     Indication: PROPHYLAXIS
     Dosage: 100 Milligram
     Route: 048
     Dates: start: 20120801, end: 20120824

REACTIONS (5)
  - Altered state of consciousness [Recovered/Resolved]
  - Inappropriate antidiuretic hormone secretion [Unknown]
  - Cerebral infarction [Unknown]
  - Infection [Unknown]
  - Pyrexia [Unknown]
